FAERS Safety Report 5649068-5 (Version None)
Quarter: 2008Q1

REPORT INFORMATION
  Report Type: 
  Country: None (occurrence: None)
  Receive Date: 20080131
  Receipt Date: 20071108
  Transmission Date: 20080703
  Serious: No
  Sender: FDA-Public Use
  Company Number: US200709005214

PATIENT
  Age: 54 Year
  Sex: Female

DRUGS (4)
  1. BYETTA [Suspect]
     Indication: TYPE 2 DIABETES MELLITUS
     Dosage: 10 UG, 2/D, SUBCUTANEOUS
     Route: 058
     Dates: start: 20070901
  2. EXENATIDE (EXENATIDE) [Concomitant]
  3. GLUCOPHAGE [Concomitant]
  4. GLIPIZIDE [Concomitant]

REACTIONS (7)
  - DRUG INEFFECTIVE [None]
  - MACULAR OEDEMA [None]
  - MALAISE [None]
  - NAUSEA [None]
  - STOMACH DISCOMFORT [None]
  - VISUAL ACUITY REDUCED [None]
  - VOMITING [None]
